FAERS Safety Report 17472764 (Version 1)
Quarter: 2020Q1

REPORT INFORMATION
  Report Type: Spontaneous
  Country: GB (occurrence: GB)
  Receive Date: 20200228
  Receipt Date: 20200228
  Transmission Date: 20200409
  Serious: No
  Sender: FDA-Public Use
  Company Number: None

PATIENT
  Age: 17 Year
  Sex: Male

DRUGS (1)
  1. DUPIXENT [Suspect]
     Active Substance: DUPILUMAB
     Dates: start: 20180701

REACTIONS (5)
  - Drug ineffective [None]
  - Eyelid irritation [None]
  - Skin exfoliation [None]
  - Eyelid skin dryness [None]
  - Eye discharge [None]
